FAERS Safety Report 25219559 (Version 1)
Quarter: 2025Q2

REPORT INFORMATION
  Report Type: Spontaneous
  Country: US (occurrence: None)
  Receive Date: 20250418
  Receipt Date: 20250418
  Transmission Date: 20250717
  Serious: Yes (Disabling)
  Sender: FDA-CTU
  Company Number: None

PATIENT
  Age: 31 Year
  Sex: Female
  Weight: 54 kg

DRUGS (1)
  1. CLARAVIS [Suspect]
     Active Substance: ISOTRETINOIN

REACTIONS (12)
  - Back pain [None]
  - Neck pain [None]
  - Hypoaesthesia [None]
  - Hypoaesthesia [None]
  - Arthralgia [None]
  - Gait disturbance [None]
  - Dry skin [None]
  - Skin atrophy [None]
  - Alopecia [None]
  - Dyspepsia [None]
  - Fatigue [None]
  - Depression [None]

NARRATIVE: CASE EVENT DATE: 20200201
